FAERS Safety Report 7436641-7 (Version None)
Quarter: 2011Q1

REPORT INFORMATION
  Report Type: 
  Country: None (occurrence: None)
  Receive Date: 20110302
  Receipt Date: 20101112
  Transmission Date: 20110831
  Serious: No
  Sender: FDA-Public Use
  Company Number: 022049

PATIENT
  Sex: Female
  Weight: 75.2 kg

DRUGS (12)
  1. FUROSEMIDE [Concomitant]
  2. ATACAND [Concomitant]
  3. LEXAPRO [Concomitant]
  4. METHOTREXATE [Concomitant]
  5. RANITIDINE [Concomitant]
  6. METOPROLOL SUCCINATE [Concomitant]
  7. DIGOXIN [Concomitant]
  8. WARFARIN [Concomitant]
  9. SIMVASTATIN [Concomitant]
  10. KLOR-CON [Concomitant]
  11. ESTRADIOL [Concomitant]
  12. CIMZIA [Suspect]
     Indication: PSORIATIC ARTHROPATHY
     Dosage: 200 MG 1X/2 WEEKS SUBCUTANEOUS, SUBCUTANEOUS
     Route: 058
     Dates: start: 20100501

REACTIONS (3)
  - NERVOUSNESS [None]
  - INAPPROPRIATE SCHEDULE OF DRUG ADMINISTRATION [None]
  - PANIC DISORDER [None]
